FAERS Safety Report 11619525 (Version 3)
Quarter: 2016Q4

REPORT INFORMATION
  Report Type: Spontaneous
  Country: CA (occurrence: CA)
  Receive Date: 20151012
  Receipt Date: 20161018
  Transmission Date: 20170206
  Serious: Yes (Other)
  Sender: FDA-Public Use
  Company Number: CA-GSKJP-KK201317945GSK1550188002

PATIENT
  Age: 45 Year
  Sex: Female
  Weight: 80 kg

DRUGS (3)
  1. BENLYSTA [Suspect]
     Active Substance: BELIMUMAB
     Dosage: 800 MG, UNK
     Route: 042
     Dates: start: 20150106
  2. BENLYSTA [Suspect]
     Active Substance: BELIMUMAB
     Indication: SYSTEMIC LUPUS ERYTHEMATOSUS
     Dosage: 810 MG, AT WEEKS 0, 2, 4 THEN EVERY 4 WEEKS
     Route: 042
     Dates: start: 20121218
  3. BENLYSTA [Suspect]
     Active Substance: BELIMUMAB
     Dosage: UNK
     Dates: start: 20160908

REACTIONS (8)
  - Facial paralysis [Unknown]
  - Influenza [Recovering/Resolving]
  - Diarrhoea [Unknown]
  - Wheezing [Recovering/Resolving]
  - Nasopharyngitis [Recovering/Resolving]
  - Lower respiratory tract infection [Recovered/Resolved]
  - Malaise [Recovering/Resolving]
  - Urinary tract infection [Recovered/Resolved]

NARRATIVE: CASE EVENT DATE: 20130921
